FAERS Safety Report 25355830 (Version 1)
Quarter: 2025Q2

REPORT INFORMATION
  Report Type: Spontaneous
  Country: HR (occurrence: HR)
  Receive Date: 20250525
  Receipt Date: 20250525
  Transmission Date: 20250716
  Serious: Yes (Other)
  Sender: ABBVIE
  Company Number: None

PATIENT
  Sex: Female

DRUGS (1)
  1. RINVOQ [Suspect]
     Active Substance: UPADACITINIB
     Indication: Crohn^s disease
     Dosage: 30 MG 1X DNEVNO
     Route: 048
     Dates: start: 2024, end: 202504

REACTIONS (1)
  - Diarrhoea haemorrhagic [Unknown]

NARRATIVE: CASE EVENT DATE: 20250301
